FAERS Safety Report 21992760 (Version 1)
Quarter: 2023Q1

REPORT INFORMATION
  Report Type: Spontaneous
  Country: ES (occurrence: ES)
  Receive Date: 20230215
  Receipt Date: 20230215
  Transmission Date: 20230417
  Serious: Yes (Hospitalization)
  Sender: FDA-Public Use
  Company Number: ES-AEMPS-1323980

PATIENT
  Age: 60 Year
  Sex: Male

DRUGS (2)
  1. CLOPIDOGREL [Interacting]
     Active Substance: CLOPIDOGREL BISULFATE
     Indication: Lacunar infarction
     Dosage: 75 MILLIGRAM, DAILY
     Route: 048
     Dates: start: 20221229, end: 20230120
  2. ASPIRIN [Suspect]
     Active Substance: ASPIRIN
     Indication: Lacunar infarction
     Dosage: 100 MILLIGRAM, DAILY
     Route: 048
     Dates: start: 20221229

REACTIONS (1)
  - Lower gastrointestinal haemorrhage [Recovering/Resolving]

NARRATIVE: CASE EVENT DATE: 20230120
